FAERS Safety Report 9617444 (Version 5)
Quarter: 2014Q2

REPORT INFORMATION
  Report Type: Report from Study
  Country: FR (occurrence: FR)
  Receive Date: 20131011
  Receipt Date: 20140507
  Transmission Date: 20141212
  Serious: Yes (Death, Life-Threatening, Hospitalization, Other)
  Sender: FDA-Public Use
  Company Number: FR-ABBVIE-13P-056-1093162-00

PATIENT
  Age: 56 Year
  Sex: Male

DRUGS (4)
  1. HUMIRA [Suspect]
     Indication: RHEUMATOID ARTHRITIS
     Route: 058
     Dates: start: 20120908, end: 20130427
  2. METHOTREXATE [Concomitant]
     Indication: RHEUMATOID ARTHRITIS
     Dates: start: 20120425, end: 20130504
  3. CORTANCYL [Concomitant]
     Indication: RHEUMATOID ARTHRITIS
     Dates: start: 201207
  4. PROFENID [Concomitant]
     Indication: RHEUMATOID ARTHRITIS
     Dosage: LP
     Dates: start: 20100106

REACTIONS (5)
  - Metastases to liver [Fatal]
  - Bile duct stone [Fatal]
  - Renal impairment [Recovered/Resolved]
  - Haemorrhagic disorder [Recovered/Resolved]
  - Cellulitis [Recovered/Resolved]
